FAERS Safety Report 6166660-2 (Version None)
Quarter: 2009Q2

REPORT INFORMATION
  Report Type: 
  Country: None (occurrence: None)
  Receive Date: 20090422
  Receipt Date: 20090408
  Transmission Date: 20091009
  Serious: Yes (Other)
  Sender: FDA-Public Use
  Company Number: 230006L09CAN

PATIENT
  Age: 56 Year
  Sex: Female

DRUGS (1)
  1. INTERFERON BETA (INTERFERON-BETA) [Suspect]
     Indication: MULTIPLE SCLEROSIS

REACTIONS (1)
  - BASEDOW'S DISEASE [None]
